FAERS Safety Report 5387030-0 (Version None)
Quarter: 2007Q3

REPORT INFORMATION
  Report Type: 
  Country: None (occurrence: None)
  Receive Date: 20070713
  Receipt Date: 20070705
  Transmission Date: 20080115
  Serious: Yes (Other)
  Sender: FDA-Public Use
  Company Number: HU-GENENTECH-216561

PATIENT
  Sex: Male
  Weight: 92 kg

DRUGS (21)
  1. RITUXIMAB [Suspect]
     Indication: CHRONIC LYMPHOCYTIC LEUKAEMIA
     Dosage: 500 MG/M2, Q28D
     Route: 042
     Dates: start: 20050407, end: 20050521
  2. CYCLOPHOSPHAMIDE [Suspect]
     Indication: CHRONIC LYMPHOCYTIC LEUKAEMIA
     Dosage: 250 MG/M2, Q28D
     Route: 042
     Dates: start: 20050408, end: 20050521
  3. FLUDARABINE PHOSPHATE [Suspect]
     Indication: CHRONIC LYMPHOCYTIC LEUKAEMIA
     Dosage: 25 MG/M2, Q28D
     Route: 042
     Dates: start: 20050408, end: 20050521
  4. METOPROLOL SUCCINATE [Concomitant]
     Indication: HYPERTENSION
     Dosage: 21 MG, UNK
     Dates: start: 19971013
  5. MONO-MACK DEPOT [Concomitant]
     Indication: MYOCARDIAL ISCHAEMIA
     Dosage: 100 MG, UNK
     Dates: start: 19930618
  6. ALLOPURINOL [Concomitant]
     Indication: TUMOUR LYSIS SYNDROME
     Dosage: 300 MG, UNK
     Dates: start: 20050407
  7. NORVASC [Concomitant]
     Indication: HYPERTENSION
     Dosage: 5 MG, UNK
     Dates: start: 19940605
  8. VALIUM [Concomitant]
     Indication: DRUG USE FOR UNKNOWN INDICATION
     Dosage: 8 MG, UNK
     Dates: start: 20050718
  9. VORICONAZOLE [Concomitant]
     Indication: DRUG USE FOR UNKNOWN INDICATION
     Dosage: 800 MG, UNK
     Dates: start: 20050727
  10. ENALAPRIL MALEATE [Concomitant]
     Indication: HYPERTENSION
     Dosage: 5 MG, UNK
     Dates: start: 20050726
  11. VANCOMYCIN HCL [Concomitant]
     Indication: DRUG USE FOR UNKNOWN INDICATION
     Dosage: 2 G, UNK
     Dates: start: 20050722
  12. SALINE INFUSION [Concomitant]
     Indication: DRUG USE FOR UNKNOWN INDICATION
     Dosage: 1500 ML, UNK
     Route: 042
     Dates: start: 20050718
  13. FINASTERIDE [Concomitant]
     Indication: BENIGN PROSTATIC HYPERPLASIA
     Dosage: 5 MG, UNK
     Dates: start: 19981017
  14. ACICLOVIRUM [Concomitant]
     Indication: PROPHYLAXIS
     Dosage: 800 MG, UNK
     Dates: start: 20050407
  15. CIPROFLOXACIN HCL [Concomitant]
     Indication: INFECTION PROPHYLAXIS
     Dates: end: 20050622
  16. SULFAMERAZIN W TRIMETHOPRIM [Concomitant]
     Indication: INFECTION PROPHYLAXIS
     Dates: end: 20050711
  17. PARACETAMOL [Concomitant]
     Indication: PREMEDICATION
     Dates: end: 20050519
  18. LORATADINE [Concomitant]
     Indication: PREMEDICATION
     Dates: end: 20050519
  19. MOXIFLOXACIN HCL [Concomitant]
     Indication: INFECTION PROPHYLAXIS
  20. KLACID [Concomitant]
     Dosage: 500 MG, BID
  21. MYCOCYST (UNK INGREDIENTS) [Suspect]

REACTIONS (1)
  - HAEMOPTYSIS [None]
